FAERS Safety Report 4695676-8 (Version None)
Quarter: 2005Q2

REPORT INFORMATION
  Report Type: 
  Country: None (occurrence: None)
  Receive Date: 20050616
  Receipt Date: 20050616
  Transmission Date: 20051028
  Serious: Yes (Other)
  Sender: FDA-Public Use
  Company Number: None

PATIENT
  Age: 55 Year
  Sex: Male

DRUGS (3)
  1. CORICIDIN [Suspect]
     Indication: NASOPHARYNGITIS
     Dosage: 1 TAB Q6H ORAL
     Route: 048
     Dates: start: 20050426, end: 20050505
  2. BENADRYL [Suspect]
     Indication: HYPERSENSITIVITY
     Dosage: 1 TAB Q6H ORAL
     Route: 048
     Dates: start: 20050423, end: 20050504
  3. PEPTO-BISMOLC [Concomitant]

REACTIONS (3)
  - ASTHENIA [None]
  - DRUG WITHDRAWAL SYNDROME [None]
  - NASOPHARYNGITIS [None]
